FAERS Safety Report 25284783 (Version 2)
Quarter: 2025Q2

REPORT INFORMATION
  Report Type: Report from Study
  Country: CA (occurrence: CA)
  Receive Date: 20250508
  Receipt Date: 20250521
  Transmission Date: 20250716
  Serious: Yes (Other)
  Sender: HLS THERAPEUTICS
  Company Number: CA-HLS-202501095

PATIENT
  Age: 59 Year
  Sex: Female

DRUGS (12)
  1. CLOZARIL [Suspect]
     Active Substance: CLOZAPINE
     Indication: Schizophrenia
     Route: 048
     Dates: start: 20190723
  2. CLOZARIL [Suspect]
     Active Substance: CLOZAPINE
     Indication: Schizophrenia
     Route: 048
  3. CLOZARIL [Suspect]
     Active Substance: CLOZAPINE
     Indication: Schizophrenia
     Route: 048
  4. Euro-fer [Concomitant]
     Indication: Product used for unknown indication
     Dosage: TAKE 1 CAPSULE BY MOUTH ONCE DAILY
     Route: 048
  5. Auro Venlaflexine XR [Concomitant]
     Indication: Product used for unknown indication
     Dosage: TOTAL DOSE OF 225 MG EVERY MORNING.
     Route: 048
  6. Auro Rosuvastatin [Concomitant]
     Indication: Product used for unknown indication
     Dosage: TAKE 1 TABLET ONCE DAILY
     Route: 048
  7. CELECOXIB [Concomitant]
     Active Substance: CELECOXIB
     Indication: Product used for unknown indication
     Dosage: TAKE 1 CAPSULE TWICE DAY
     Route: 048
  8. CLONAZEPAM [Concomitant]
     Active Substance: CLONAZEPAM
     Indication: Product used for unknown indication
     Dosage: TAKE 0.5 MG TABLET 3 TIMES DAILY
     Route: 048
  9. RESTORIL [Concomitant]
     Active Substance: TEMAZEPAM
     Indication: Product used for unknown indication
     Dosage: 30 MG 1 CAP AT BEDTIME
     Route: 048
  10. MIRTAZAPINE [Concomitant]
     Active Substance: MIRTAZAPINE
     Indication: Product used for unknown indication
     Dosage: TAKE 1.5 TABLETS AT BEDTIME
     Route: 048
  11. Siv Pantoprazole [Concomitant]
     Indication: Product used for unknown indication
     Dosage: TAKE 1 TABLETS BY MOUTH ONCE DAILY
     Route: 048
  12. EFFEXOR [Concomitant]
     Active Substance: VENLAFAXINE HYDROCHLORIDE
     Indication: Product used for unknown indication
     Route: 048

REACTIONS (12)
  - Anaemia [Unknown]
  - Orthostatic hypotension [Not Recovered/Not Resolved]
  - Chest pain [Recovered/Resolved]
  - Depression [Unknown]
  - Dizziness [Unknown]
  - Hyperlipidaemia [Unknown]
  - Insomnia [Unknown]
  - Affective disorder [Unknown]
  - Psychotic disorder [Unknown]
  - Red cell distribution width increased [Unknown]
  - Dyspnoea [Recovered/Resolved]
  - Tachycardia [Recovered/Resolved]

NARRATIVE: CASE EVENT DATE: 20250320
